FAERS Safety Report 9018720 (Version 5)
Quarter: 2013Q1

REPORT INFORMATION
  Report Type: Report from Study
  Country: FR (occurrence: FR)
  Receive Date: 20130118
  Receipt Date: 20130308
  Transmission Date: 20140127
  Serious: Yes (Hospitalization)
  Sender: FDA-Public Use
  Company Number: FR-TEVA-381513USA

PATIENT
  Age: 80 Year
  Sex: Female
  Weight: 68.8 kg

DRUGS (21)
  1. TREANDA [Suspect]
     Indication: PRODUCT USED FOR UNKNOWN INDICATION
  2. RITUXIMAB [Suspect]
     Indication: NON-HODGKIN^S LYMPHOMA
     Route: 042
     Dates: start: 20120920, end: 20120920
  3. RITUXIMAB [Suspect]
     Dosage: REGIMEN#2
     Route: 058
     Dates: start: 20121018
  4. RITUXIMAB [Suspect]
     Dosage: REGIMEN #3
     Route: 058
     Dates: start: 20121115
  5. RITUXIMAB [Suspect]
     Dosage: REGIMEN#4
     Route: 058
     Dates: start: 20121213
  6. FORTZAAR [Concomitant]
  7. HYDROCHLOROTHIAZIDE/LOSARTAN POTASSIUM [Concomitant]
     Indication: HYPERTENSION
     Dates: start: 2006
  8. SOTALOL [Concomitant]
     Indication: HYPERTENSION
     Dates: start: 20120815
  9. LERCAN [Concomitant]
     Indication: HYPERTENSION
     Dates: start: 20050815
  10. PRAVASTATINE [Concomitant]
     Dates: start: 2005
  11. DIAFUSOR [Concomitant]
     Dates: start: 2005
  12. KARDEGIC [Concomitant]
     Dates: start: 2005, end: 20121227
  13. PARACETAMOL [Concomitant]
     Indication: PROPHYLACTIC CHEMOTHERAPY
     Dates: start: 20120920
  14. DEXCHLORPHENIRAMINE [Concomitant]
     Indication: PROPHYLACTIC CHEMOTHERAPY
     Dates: start: 20120920
  15. METHYLPREDNISOLONE [Concomitant]
     Indication: PROPHYLACTIC CHEMOTHERAPY
     Dates: start: 20120920
  16. INNOHEP [Concomitant]
     Indication: PULMONARY EMBOLISM
     Dates: start: 20121213, end: 20121217
  17. PREVISCAN [Concomitant]
     Indication: PULMONARY EMBOLISM
     Dates: start: 20121213, end: 20130108
  18. LOVENOX [Concomitant]
     Indication: PULMONARY EMBOLISM
     Dates: start: 20121218, end: 20130109
  19. AMLODIPINE BESILATE [Concomitant]
     Indication: HYPERTENSION
     Dates: start: 20121217
  20. NITRIDERM [Concomitant]
     Dates: start: 20121217
  21. DIFFU K [Concomitant]
     Indication: HYPOKALAEMIA
     Dates: start: 20121217

REACTIONS (1)
  - Delirium [Recovered/Resolved with Sequelae]
